FAERS Safety Report 9358861 (Version 2)
Quarter: 2013Q4

REPORT INFORMATION
  Report Type: Spontaneous
  Country: US (occurrence: US)
  Receive Date: 20130620
  Receipt Date: 20131126
  Transmission Date: 20140711
  Serious: Yes (Hospitalization)
  Sender: FDA-Public Use
  Company Number: US-B.I. PHARMACEUTICALS,INC./RIDGEFIELD-2013-BI-17211BP

PATIENT
  Sex: Female
  Weight: 105.8 kg

DRUGS (6)
  1. PRADAXA [Suspect]
     Indication: ATRIAL FIBRILLATION
     Dosage: 300 MG
     Route: 048
     Dates: start: 20110715, end: 20111031
  2. PRADAXA [Suspect]
     Indication: ANTICOAGULANT THERAPY
  3. ACETAMINOPHEN [Concomitant]
  4. AMITRIPTYLINE [Concomitant]
  5. METOPROLOL [Concomitant]
  6. AMLODIPINE [Concomitant]

REACTIONS (2)
  - Anaemia [Unknown]
  - Upper gastrointestinal haemorrhage [Unknown]
